FAERS Safety Report 4372048-7 (Version None)
Quarter: 2004Q2

REPORT INFORMATION
  Report Type: 
  Country: None (occurrence: None)
  Receive Date: 20040602
  Receipt Date: 20040520
  Transmission Date: 20050107
  Serious: Yes (Death, Other)
  Sender: FDA-Public Use
  Company Number: 2004019446

PATIENT
  Age: 58 Year
  Sex: Male
  Weight: 49.8957 kg

DRUGS (8)
  1. VIAGRA [Suspect]
     Indication: ERECTILE DYSFUNCTION
     Dosage: 50 MG (AS NEEDED), ORAL
     Route: 048
     Dates: start: 20040312, end: 20040312
  2. DIGOXIN [Concomitant]
  3. ACE INHIBITOR NOS (ACE INHIBITOR NOS) [Concomitant]
  4. ENALAPRIL MALEATE [Concomitant]
  5. FUROSEMIDE [Concomitant]
  6. MAGNESIUM ASPARTATE (MAGNESIUM ASPARTATE) [Concomitant]
  7. WARFARIN SODIUM [Concomitant]
  8. SPIRONOLACTONE [Concomitant]

REACTIONS (2)
  - CARDIAC FAILURE [None]
  - CIRCULATORY COLLAPSE [None]
